FAERS Safety Report 5652331-5 (Version None)
Quarter: 2008Q1

REPORT INFORMATION
  Report Type: 
  Country: None (occurrence: None)
  Receive Date: 20080305
  Receipt Date: 20080305
  Transmission Date: 20080703
  Serious: Yes (Hospitalization)
  Sender: FDA-Public Use
  Company Number: None

PATIENT
  Sex: Female
  Weight: 97.5234 kg

DRUGS (2)
  1. INVEGA [Suspect]
     Indication: DELUSION
     Dosage: 12MG QAM PO
     Route: 048
     Dates: start: 20071126, end: 20080130
  2. INVEGA [Suspect]
     Indication: SCHIZOPHRENIA, PARANOID TYPE
     Dosage: 12MG QAM PO
     Route: 048
     Dates: start: 20071126, end: 20080130

REACTIONS (2)
  - HYPERGLYCAEMIA [None]
  - LIPIDS INCREASED [None]
